FAERS Safety Report 7864165-1 (Version None)
Quarter: 2011Q4

REPORT INFORMATION
  Report Type: 
  Country: None (occurrence: None)
  Receive Date: 20111028
  Receipt Date: 20111021
  Transmission Date: 20120403
  Serious: Yes (Other)
  Sender: FDA-Public Use
  Company Number: US-PFIZER INC-2011257312

PATIENT
  Sex: Male

DRUGS (1)
  1. SUTENT [Suspect]
     Indication: RENAL CANCER
     Dosage: 50 MG, 1X/DAY
     Dates: start: 20110912, end: 20111009

REACTIONS (11)
  - JOINT SWELLING [None]
  - SWELLING [None]
  - HEPATIC FUNCTION ABNORMAL [None]
  - HALLUCINATION [None]
  - DIARRHOEA [None]
  - OEDEMA PERIPHERAL [None]
  - DECREASED APPETITE [None]
  - NAUSEA [None]
  - PAIN [None]
  - ABASIA [None]
  - ARTHRALGIA [None]
